FAERS Safety Report 7254865-9 (Version None)
Quarter: 2011Q1

REPORT INFORMATION
  Report Type: 
  Country: None (occurrence: None)
  Receive Date: 20110129
  Receipt Date: 20100310
  Transmission Date: 20110831
  Serious: No
  Sender: FDA-Public Use
  Company Number: US-ABBOTT-10P-163-0631546-00

PATIENT
  Sex: Female

DRUGS (1)
  1. HUMIRA [Suspect]
     Indication: ANKYLOSING SPONDYLITIS
     Dates: start: 20100216

REACTIONS (9)
  - NASOPHARYNGITIS [None]
  - PAIN IN EXTREMITY [None]
  - ARTHRALGIA [None]
  - DIARRHOEA [None]
  - PAIN [None]
  - NAUSEA [None]
  - BONE PAIN [None]
  - VOMITING [None]
  - DIZZINESS [None]
